FAERS Safety Report 8193031-X (Version None)
Quarter: 2012Q1

REPORT INFORMATION
  Report Type: 
  Country: None (occurrence: None)
  Receive Date: 20120308
  Receipt Date: 20120228
  Transmission Date: 20120608
  Serious: Yes (Death, Hospitalization)
  Sender: FDA-Public Use
  Company Number: JP-AMGEN-KDC435277

PATIENT
  Age: 61 Year
  Sex: Male
  Weight: 70 kg

DRUGS (9)
  1. PYDOXAL [Concomitant]
     Route: 048
     Dates: start: 20100701, end: 20100928
  2. BESOFTEN [Concomitant]
     Route: 062
  3. RINDERON-VG [Concomitant]
     Route: 062
  4. NOVORAPID [Concomitant]
     Route: 042
  5. LANTUS [Concomitant]
     Route: 042
  6. MINOCYCLINE HCL [Concomitant]
     Route: 048
     Dates: start: 20100701, end: 20100812
  7. ANTEBATE [Concomitant]
     Route: 062
  8. PANITUMUMAB [Suspect]
     Indication: COLORECTAL CANCER
     Dosage: 6 MG/KG, Q2WK
     Route: 041
     Dates: start: 20100701, end: 20100812
  9. PREDNISOLONE [Concomitant]
     Indication: RADIATION INJURY
     Route: 048
     Dates: start: 20100722, end: 20100918

REACTIONS (5)
  - COLORECTAL CANCER [None]
  - METASTASES TO LUNG [None]
  - DERMATITIS ACNEIFORM [None]
  - NEOPLASM PROGRESSION [None]
  - INTERSTITIAL LUNG DISEASE [None]
